FAERS Safety Report 7281456-6 (Version None)
Quarter: 2011Q1

REPORT INFORMATION
  Report Type: 
  Country: None (occurrence: None)
  Receive Date: 20110208
  Receipt Date: 20110125
  Transmission Date: 20110831
  Serious: No
  Sender: FDA-Public Use
  Company Number: PHHY2011US06946

PATIENT
  Sex: Female

DRUGS (3)
  1. PEPCID [Interacting]
     Dosage: UNK
  2. TASIGNA [Interacting]
     Indication: CHRONIC MYELOID LEUKAEMIA
  3. TASIGNA [Suspect]
     Indication: CHROMOSOME ANALYSIS ABNORMAL
     Dosage: 150 MG, BID
     Route: 048
     Dates: start: 20110117, end: 20110125

REACTIONS (6)
  - NAUSEA [None]
  - HEADACHE [None]
  - PLATELET COUNT DECREASED [None]
  - DRUG INTERACTION [None]
  - HAEMOGLOBIN DECREASED [None]
  - MYALGIA [None]
